FAERS Safety Report 17062933 (Version 2)
Quarter: 2019Q4

REPORT INFORMATION
  Report Type: Spontaneous
  Country: US (occurrence: US)
  Receive Date: 20191122
  Receipt Date: 20191129
  Transmission Date: 20200122
  Serious: No
  Sender: FDA-Public Use
  Company Number: US-BEH-2019109658

PATIENT
  Age: 37 Year
  Sex: Male

DRUGS (2)
  1. PRIVIGEN [Suspect]
     Active Substance: HUMAN IMMUNOGLOBULIN G
     Indication: SYSTEMIC SCLERODERMA
  2. PRIVIGEN [Suspect]
     Active Substance: HUMAN IMMUNOGLOBULIN G
     Indication: POLYMYOSITIS
     Dosage: 40 GRAM, DAILY FOR THREE DAYS, EVERY FOUR WEEKS
     Route: 042
     Dates: start: 20191017

REACTIONS (5)
  - No adverse event [Unknown]
  - Feeling hot [Unknown]
  - Infusion site pain [Unknown]
  - Product use in unapproved indication [Unknown]
  - Injection site extravasation [Unknown]
